FAERS Safety Report 20084519 (Version 1)
Quarter: 2021Q4

REPORT INFORMATION
  Report Type: Spontaneous
  Country: CN (occurrence: CN)
  Receive Date: 20211118
  Receipt Date: 20211118
  Transmission Date: 20220304
  Serious: Yes (Other)
  Sender: FDA-Public Use
  Company Number: CN-SA-SAC20211115000013

PATIENT
  Age: 34 Year
  Sex: Female
  Weight: 62 kg

DRUGS (4)
  1. FLUOROURACIL [Suspect]
     Active Substance: FLUOROURACIL
     Indication: Gastric cancer
     Dosage: 0.25 G, QD
     Route: 041
     Dates: start: 20211025, end: 20211025
  2. OXALIPLATIN [Suspect]
     Active Substance: OXALIPLATIN
     Indication: Gastric cancer
     Dosage: 50 MG, QD
     Route: 041
     Dates: start: 20211025, end: 20211025
  3. DEXTROSE [Concomitant]
     Active Substance: DEXTROSE
     Indication: Gastric cancer
     Dosage: 250 ML, QD
     Route: 041
     Dates: start: 20211025, end: 20211025
  4. DEXTROSE [Concomitant]
     Active Substance: DEXTROSE
     Dosage: 100 ML, QD
     Route: 041
     Dates: start: 20211025, end: 20211025

REACTIONS (2)
  - Neurotoxicity [Recovering/Resolving]
  - Hypoaesthesia [Recovering/Resolving]

NARRATIVE: CASE EVENT DATE: 20211026
